FAERS Safety Report 5168698-0 (Version None)
Quarter: 2006Q4

REPORT INFORMATION
  Report Type: 
  Country: None (occurrence: None)
  Receive Date: 20061204
  Receipt Date: 20061204
  Transmission Date: 20070319
  Serious: Yes (Death)
  Sender: FDA-Public Use
  Company Number: None

PATIENT
  Age: 76 Year
  Sex: Female
  Weight: 101.6057 kg

DRUGS (1)
  1. DEXMEDETOMIDINE [Suspect]
     Indication: SEDATION
     Dosage: 50MCG   CONTINUOUS   IV DRIP
     Route: 041
     Dates: start: 20060424, end: 20060424

REACTIONS (3)
  - CARDIAC ARREST [None]
  - PROCEDURAL HYPOTENSION [None]
  - PULMONARY OEDEMA [None]
